FAERS Safety Report 7384345-1 (Version None)
Quarter: 2011Q1

REPORT INFORMATION
  Report Type: 
  Country: None (occurrence: None)
  Receive Date: 20110330
  Receipt Date: 20100923
  Transmission Date: 20110831
  Serious: Yes (Other)
  Sender: FDA-Public Use
  Company Number: US-BAYER-201032325NA

PATIENT
  Sex: Female
  Weight: 113.38 kg

DRUGS (12)
  1. YASMIN [Suspect]
     Indication: MENSTRUATION IRREGULAR
  2. ALBUTEROL [Concomitant]
     Dosage: UNK UNK, PRN
  3. YASMIN [Suspect]
     Indication: ACNE
     Dosage: UNK
     Dates: start: 20040101, end: 20070101
  4. YAZ [Suspect]
     Indication: POLYCYSTIC OVARIES
  5. YASMIN [Suspect]
     Indication: POLYCYSTIC OVARIES
  6. OCELLA [Suspect]
  7. UNCODEABLE ^UNCLASSIFIABLE^ [Concomitant]
     Dosage: DAILY DOSE 5 MG
     Route: 048
     Dates: start: 20060512
  8. STRATTERA [Concomitant]
     Dosage: DAILY DOSE 60 MG
     Dates: start: 20040226
  9. YAZ [Suspect]
     Indication: MENSTRUATION IRREGULAR
  10. UNCODEABLE ^UNCLASSIFIABLE^ [Concomitant]
     Dosage: DAILY DOSE 10 MG
     Route: 048
     Dates: start: 20070102
  11. IBUPROFEN [Concomitant]
     Dosage: UNK
     Dates: start: 20070827
  12. YAZ [Suspect]
     Indication: ACNE
     Dosage: UNK
     Dates: start: 20040101, end: 20070101

REACTIONS (12)
  - GALLBLADDER DISORDER [None]
  - THROMBOPHLEBITIS [None]
  - HYPERTENSION [None]
  - HEPATIC ADENOMA [None]
  - DEPRESSION [None]
  - CEREBRAL HAEMORRHAGE [None]
  - BENIGN HEPATIC NEOPLASM [None]
  - PULMONARY EMBOLISM [None]
  - EMBOLISM ARTERIAL [None]
  - MYOCARDIAL INFARCTION [None]
  - CEREBRAL THROMBOSIS [None]
  - DEEP VEIN THROMBOSIS [None]
